FAERS Safety Report 7244081-9 (Version None)
Quarter: 2011Q1

REPORT INFORMATION
  Report Type: 
  Country: None (occurrence: None)
  Receive Date: 20110119
  Receipt Date: 20110119
  Transmission Date: 20110831
  Serious: Yes (Death, Life-Threatening, Hospitalization)
  Sender: FDA-Public Use
  Company Number: None

PATIENT
  Age: 76 Year
  Sex: Male
  Weight: 68.0396 kg

DRUGS (1)
  1. AMIODARONE HCL [Suspect]
     Dosage: 1 AND 1/4 TABLET PER DAY PO
     Route: 048
     Dates: start: 20040101, end: 20080101

REACTIONS (2)
  - PULMONARY HAEMORRHAGE [None]
  - PULMONARY FIBROSIS [None]
